FAERS Safety Report 5071206-6 (Version None)
Quarter: 2006Q3

REPORT INFORMATION
  Report Type: 
  Country: None (occurrence: None)
  Receive Date: 20060803
  Receipt Date: 20060803
  Transmission Date: 20061208
  Serious: Yes (Other)
  Sender: FDA-Public Use
  Company Number: None

PATIENT
  Age: 65 Year
  Sex: Male
  Weight: 70 kg

DRUGS (2)
  1. TETRACAINE 1% 2CC   HOSPIRA [Suspect]
     Indication: KNEE ARTHROPLASTY
     Dosage: 20MG  SAB
     Dates: start: 20060801
  2. .. [Concomitant]

REACTIONS (2)
  - ANAESTHETIC COMPLICATION [None]
  - DRUG INEFFECTIVE [None]
